FAERS Safety Report 8837745 (Version 1)
Quarter: 2012Q4

REPORT INFORMATION
  Report Type: 
  Country: IT (occurrence: IT)
  Receive Date: 20121012
  Receipt Date: 20121012
  Transmission Date: 20130627
  Serious: Yes (Hospitalization)
  Sender: FDA-Public Use
  Company Number: IT-TEVA-362914ISR

PATIENT
  Age: 87 Year
  Sex: Female

DRUGS (9)
  1. AMOXICILLIN [Suspect]
     Indication: WOUND
     Dosage: 2 Gram Daily;
     Route: 048
     Dates: start: 20120919, end: 20120922
  2. CARDURA [Concomitant]
     Route: 048
  3. LANOXIN [Concomitant]
     Route: 048
  4. TRIATEC HCT [Concomitant]
     Route: 048
  5. TRIATEC HCT [Concomitant]
     Route: 048
  6. LASIX [Concomitant]
     Route: 048
  7. ZYLORIC [Concomitant]
     Route: 048
  8. CARDIOASPIRIN [Concomitant]
     Route: 048
  9. GLICAZIDE [Concomitant]

REACTIONS (2)
  - Urticaria [Recovered/Resolved]
  - Blood glucose increased [Recovered/Resolved]
